FAERS Safety Report 4287612-3 (Version None)
Quarter: 2004Q1

REPORT INFORMATION
  Report Type: 
  Country: None (occurrence: None)
  Receive Date: 20040209
  Receipt Date: 20030807
  Transmission Date: 20041129
  Serious: No
  Sender: FDA-Public Use
  Company Number: US-GLAXOSMITHKLINE-A0419996A

PATIENT
  Age: 40 Year
  Sex: Female

DRUGS (4)
  1. PAXIL [Suspect]
     Indication: DEPRESSION
     Dosage: 12.5MG PER DAY
     Route: 048
     Dates: start: 20030805
  2. SINGULAIR [Concomitant]
  3. ALBUTEROL [Concomitant]
  4. SYNTHROID [Concomitant]

REACTIONS (5)
  - INSOMNIA [None]
  - NAUSEA [None]
  - SINUSITIS [None]
  - WHEEZING [None]
  - YAWNING [None]
